FAERS Safety Report 8087794-1 (Version None)
Quarter: 2012Q1

REPORT INFORMATION
  Report Type: 
  Country: None (occurrence: None)
  Receive Date: 20120128
  Receipt Date: 20110604
  Transmission Date: 20120608
  Serious: No
  Sender: FDA-Public Use
  Company Number: US-ABBOTT-11P-163-0730605-00

PATIENT
  Age: 61 Year
  Sex: Female

DRUGS (2)
  1. ARAVA [Concomitant]
     Indication: RHEUMATOID ARTHRITIS
  2. HUMIRA [Suspect]
     Indication: RHEUMATOID ARTHRITIS
     Dates: start: 20060101, end: 20110603

REACTIONS (2)
  - INFLUENZA [None]
  - MUSCULOSKELETAL STIFFNESS [None]
